FAERS Safety Report 23480678 (Version 3)
Quarter: 2024Q2

REPORT INFORMATION
  Report Type: Other
  Country: US (occurrence: None)
  Receive Date: 20240205
  Receipt Date: 20240410
  Transmission Date: 20240716
  Serious: Yes (Hospitalization)
  Sender: FDA-Public Use
  Company Number: US-ROCHE-3503999

PATIENT
  Age: 60 Year
  Sex: Female
  Weight: 59.02 kg

DRUGS (10)
  1. OCREVUS [Suspect]
     Active Substance: OCRELIZUMAB
     Indication: Relapsing multiple sclerosis
     Dosage: DATE OF TREATMENT: 06/AUG/2021, 11/JAN/2022, 28/JUN/2022, 16/DEC/2022?MOST RECENT DOSE: 18/JUL/2023
     Route: 042
     Dates: start: 20210723
  2. OCREVUS [Suspect]
     Active Substance: OCRELIZUMAB
     Dosage: DOT: 18-JUL-2023, 16-DEC-2022, 28-JUN-2022, 11-JAN-2022
     Route: 042
  3. PRIMIDONE [Concomitant]
     Active Substance: PRIMIDONE
  4. REQUIP [Concomitant]
     Active Substance: ROPINIROLE HYDROCHLORIDE
  5. OMEPRAZOLE [Concomitant]
     Active Substance: OMEPRAZOLE
  6. COLESTIPOL [Concomitant]
     Active Substance: COLESTIPOL
  7. GABAPENTIN [Concomitant]
     Active Substance: GABAPENTIN
  8. TYLENOL [Concomitant]
     Active Substance: ACETAMINOPHEN
  9. PREDNISONE [Concomitant]
     Active Substance: PREDNISONE
  10. BENADRYL [Concomitant]
     Active Substance: DIPHENHYDRAMINE HYDROCHLORIDE

REACTIONS (6)
  - COVID-19 [Recovered/Resolved]
  - Blood potassium decreased [Not Recovered/Not Resolved]
  - Dehydration [Not Recovered/Not Resolved]
  - Fatigue [Not Recovered/Not Resolved]
  - Decreased appetite [Recovered/Resolved]
  - Weight decreased [Unknown]

NARRATIVE: CASE EVENT DATE: 20231101
